FAERS Safety Report 12304962 (Version 1)
Quarter: 2016Q2

REPORT INFORMATION
  Report Type: Report from Study
  Country: US (occurrence: US)
  Receive Date: 20160426
  Receipt Date: 20160426
  Transmission Date: 20160815
  Serious: Yes (Other)
  Sender: FDA-Public Use
  Company Number: ADR-2015-00763

PATIENT
  Age: 36 Year
  Sex: Female

DRUGS (10)
  1. COMPOUNDED BACLOFEN [Suspect]
     Active Substance: BACLOFEN
     Dosage: 260.1
     Route: 037
     Dates: start: 20141204
  2. COMPOUNDED BACLOFEN [Suspect]
     Active Substance: BACLOFEN
     Dosage: 300.1 MCG/DAY
     Route: 037
     Dates: end: 20140516
  3. COMPOUNDED BACLOFEN [Suspect]
     Active Substance: BACLOFEN
     Dosage: 252.1 MCG/DAY
     Route: 037
     Dates: start: 20140904
  4. TIZANIDINE. [Concomitant]
     Active Substance: TIZANIDINE
     Route: 065
  5. COMPOUNDED BACLOFEN [Suspect]
     Active Substance: BACLOFEN
     Dosage: 269.8 MCG/DAY
     Route: 037
     Dates: start: 20140516, end: 20140530
  6. COMPOUNDED BACLOFEN [Suspect]
     Active Substance: BACLOFEN
     Dosage: 259.9 MCG/DAY
     Route: 037
     Dates: start: 20140530, end: 20140612
  7. BACLOFEN. [Concomitant]
     Active Substance: BACLOFEN
     Route: 065
  8. COMPOUNDED BACLOFEN [Suspect]
     Active Substance: BACLOFEN
     Dosage: 255.1 MCG/DAY
     Route: 037
     Dates: start: 20140828, end: 20140904
  9. COMPOUNDED BACLOFEN [Suspect]
     Active Substance: BACLOFEN
     Dosage: 254.9 MCG/DAY
     Route: 037
     Dates: start: 20140612
  10. COMPOUNDED BACLOFEN [Suspect]
     Active Substance: BACLOFEN
     Dosage: 259.9 MCG/DAY
     Route: 037
     Dates: start: 20141124, end: 20141204

REACTIONS (8)
  - Overdose [Recovered/Resolved]
  - Muscle tightness [Unknown]
  - Overdose [Unknown]
  - Gait disturbance [Recovered/Resolved]
  - Muscle tightness [Recovered/Resolved]
  - Muscle tightness [Recovered/Resolved]
  - Adverse drug reaction [Recovered/Resolved]
  - Overdose [Recovered/Resolved]

NARRATIVE: CASE EVENT DATE: 20140516
